FAERS Safety Report 13937949 (Version 3)
Quarter: 2017Q4

REPORT INFORMATION
  Report Type: Report from Study
  Country: JP (occurrence: JP)
  Receive Date: 20170905
  Receipt Date: 20171005
  Transmission Date: 20180320
  Serious: Yes (Death)
  Sender: FDA-Public Use
  Company Number: JP-PFIZER INC-2017378030

PATIENT
  Age: 57 Year
  Sex: Male
  Weight: 68 kg

DRUGS (9)
  1. REBAMIPIDE [Concomitant]
     Active Substance: REBAMIPIDE
     Dosage: 100 MG, 3X/DAY
     Route: 048
     Dates: end: 20141124
  2. MAGLAX [Concomitant]
     Active Substance: MAGNESIUM OXIDE
     Dosage: 500 MG, 3X/DAY
     Route: 048
     Dates: end: 20141124
  3. MORPHINE HYDROCHLORIDE [Concomitant]
     Active Substance: MORPHINE HYDROCHLORIDE
     Dosage: 20 MG, DAILY
     Dates: end: 20141124
  4. XALKORI [Suspect]
     Active Substance: CRIZOTINIB
     Indication: NON-SMALL CELL LUNG CANCER
     Dosage: 250 MG, 2X/DAY
     Route: 048
     Dates: start: 20141122, end: 20141123
  5. PARIET [Concomitant]
     Active Substance: RABEPRAZOLE SODIUM
     Dosage: 10 MG, 1X/DAY
     Route: 048
     Dates: end: 20141124
  6. ZOSYN [Concomitant]
     Active Substance: PIPERACILLIN SODIUM\TAZOBACTAM SODIUM
     Dosage: 4.5 G, 3X/DAY
     Dates: end: 20141124
  7. LOXOPROFEN [Concomitant]
     Active Substance: LOXOPROFEN
     Dosage: 60 MG, 3X/DAY
     Route: 048
     Dates: end: 20141124
  8. NOVAMIN /00013301/ [Concomitant]
     Active Substance: PROCHLORPERAZINE
     Dosage: 5 MG, 3X/DAY
     Route: 048
     Dates: end: 20141124
  9. OXYCONTIN [Concomitant]
     Active Substance: OXYCODONE HYDROCHLORIDE
     Dosage: 5 MG, 2X/DAY
     Route: 048
     Dates: start: 20141118, end: 20141121

REACTIONS (1)
  - Neoplasm progression [Fatal]
